FAERS Safety Report 10449511 (Version 1)
Quarter: 2014Q3

REPORT INFORMATION
  Report Type: Spontaneous
  Country: US (occurrence: None)
  Receive Date: 20140911
  Receipt Date: 20140911
  Transmission Date: 20150326
  Serious: Yes (Other)
  Sender: FDA-Public Use
  Company Number: None

PATIENT
  Age: 57 Year
  Sex: Female
  Weight: 117.94 kg

DRUGS (1)
  1. DULOXETINE 30 MG C APOTEX [Suspect]
     Active Substance: DULOXETINE
     Indication: FIBROMYALGIA
     Dosage: 1 PILL TWICE A DAY  ONCE DAILY TAKEN BY MOUTH
     Route: 048
     Dates: start: 20140115, end: 20140910

REACTIONS (4)
  - Cough [None]
  - Retching [None]
  - Choking [None]
  - Hyperhidrosis [None]

NARRATIVE: CASE EVENT DATE: 20140501
